FAERS Safety Report 4608943-0 (Version None)
Quarter: 2005Q1

REPORT INFORMATION
  Report Type: 
  Country: None (occurrence: None)
  Receive Date: 20050311
  Receipt Date: 20050301
  Transmission Date: 20050727
  Serious: Yes (Hospitalization)
  Sender: FDA-Public Use
  Company Number: 2004-121767-NL

PATIENT
  Age: 19 Year
  Sex: Female

DRUGS (7)
  1. MIRTAZAPINE [Suspect]
     Indication: DEPRESSION
     Dosage: 30 MG
     Route: 048
     Dates: start: 20040622, end: 20040623
  2. MIRTAZAPINE [Suspect]
     Indication: SEDATION
     Dosage: 30 MG
     Route: 048
     Dates: start: 20040622, end: 20040623
  3. GABAPENTIN [Suspect]
     Indication: PAIN
     Dosage: 300 MG BID/ 300 MG QD
     Dates: start: 20031210, end: 20040606
  4. GABAPENTIN [Suspect]
     Indication: PAIN
     Dosage: 300 MG BID/ 300 MG QD
     Dates: start: 20040607, end: 20040621
  5. BUSPIRONE HCL [Concomitant]
  6. FLUOXETINE [Concomitant]
  7. ZOPICLONE [Concomitant]

REACTIONS (6)
  - CONVULSION [None]
  - EYE ROLLING [None]
  - FALL [None]
  - FOAMING AT MOUTH [None]
  - LOSS OF CONSCIOUSNESS [None]
  - TREMOR [None]
